FAERS Safety Report 7705564-8 (Version None)
Quarter: 2011Q3

REPORT INFORMATION
  Report Type: 
  Country: None (occurrence: None)
  Receive Date: 20110824
  Receipt Date: 20110810
  Transmission Date: 20111222
  Serious: Yes (Other)
  Sender: FDA-Public Use
  Company Number: GB-MYLANLABS-2011S1017008

PATIENT
  Age: 48 Year
  Sex: Female

DRUGS (4)
  1. BOTULINUM TOXIN TYPE A [Suspect]
     Indication: DYSTONIA
  2. BACLOFEN [Suspect]
     Indication: DYSTONIA
     Route: 048
  3. ANTICHOLINERGICS [Suspect]
     Indication: DYSTONIA
     Route: 048
  4. BENZODIAZEPINE [Suspect]
     Indication: DYSTONIA
     Route: 048

REACTIONS (4)
  - DRUG INEFFECTIVE [None]
  - DISEASE PROGRESSION [None]
  - DYSTONIA [None]
  - PAIN IN EXTREMITY [None]
